FAERS Safety Report 9283895 (Version 5)
Quarter: 2013Q2

REPORT INFORMATION
  Report Type: Report from Study
  Country: US (occurrence: US)
  Receive Date: 20130510
  Receipt Date: 20130606
  Transmission Date: 20140414
  Serious: Yes (Hospitalization)
  Sender: FDA-Public Use
  Company Number: US-ROCHE-1190106

PATIENT
  Age: 74 Year
  Sex: Female
  Weight: 66.4 kg

DRUGS (20)
  1. BLINDED GDC-0941 (PI3K INHIBITOR) [Suspect]
     Indication: NON-SMALL CELL LUNG CANCER
     Dosage: MOST RECENT DOSE ON 03/FEB/2013
     Route: 048
     Dates: start: 20121112, end: 20130203
  2. BEVACIZUMAB [Suspect]
     Indication: NON-SMALL CELL LUNG CANCER
     Dosage: LAST DOSE PRIOR TO EVENT: 21/JAN/2013, 980MG
     Route: 042
     Dates: start: 20121112
  3. PACLITAXEL [Suspect]
     Indication: NON-SMALL CELL LUNG CANCER
     Dosage: MOST RECENT DOSE ON 21/JAN/2013, 325MG
     Route: 042
     Dates: start: 20121112, end: 20130121
  4. CARBOPLATIN [Suspect]
     Indication: NON-SMALL CELL LUNG CANCER
     Dosage: MOST RECENT DOSE ON 21/JAN/2013,490MG
     Route: 042
     Dates: start: 20121112, end: 20130121
  5. ENALAPRIL [Concomitant]
     Indication: HYPERTENSION
     Route: 048
     Dates: start: 200512
  6. DIGOXIN [Concomitant]
     Indication: AORTIC ANEURYSM
     Route: 048
     Dates: start: 200512
  7. POTASSIUM CHLORIDE [Concomitant]
     Route: 048
     Dates: start: 200512
  8. LASIX [Concomitant]
     Indication: HYPERTENSION
     Route: 048
     Dates: start: 200512
  9. LIPITOR [Concomitant]
     Route: 048
  10. SYNTHROID [Concomitant]
     Indication: HYPOTHYROIDISM
     Route: 048
     Dates: start: 201108
  11. COUMADIN [Concomitant]
     Indication: PROPHYLAXIS
     Route: 048
     Dates: start: 200505
  12. FERROUS SULPHATE [Concomitant]
     Route: 048
     Dates: start: 200505
  13. AMBIEN [Concomitant]
     Indication: SLEEP DISORDER
     Route: 048
     Dates: start: 20121018
  14. CLARITIN [Concomitant]
     Indication: HYPERSENSITIVITY
     Route: 048
     Dates: start: 20121203
  15. XGEVA [Concomitant]
     Indication: METASTASES TO BONE
     Route: 058
     Dates: start: 20121018
  16. VICKS FORMULA 44 [Concomitant]
     Indication: COUGH
     Route: 048
     Dates: start: 20121212
  17. CORTISONE CREAM [Concomitant]
     Indication: PRURITUS
     Route: 061
     Dates: start: 20130114
  18. LEVOTHYROXINE [Concomitant]
     Route: 065
  19. FAMOTIDINE [Concomitant]
     Route: 048
  20. NEULASTA [Concomitant]
     Route: 058
     Dates: start: 20121204

REACTIONS (3)
  - Acute pulmonary oedema [Unknown]
  - Dyspnoea [Recovered/Resolved]
  - Pneumonitis [Not Recovered/Not Resolved]
